FAERS Safety Report 25158495 (Version 3)
Quarter: 2025Q2

REPORT INFORMATION
  Report Type: Spontaneous
  Country: FR (occurrence: FR)
  Receive Date: 20250404
  Receipt Date: 20250430
  Transmission Date: 20250717
  Serious: Yes (Other)
  Sender: SAMSUNG BIOEPIS
  Company Number: FR-SAMSUNG BIOEPIS-SB-2025-11111

PATIENT
  Sex: Female

DRUGS (3)
  1. ETANERCEPT [Suspect]
     Active Substance: ETANERCEPT
     Indication: Spondylitis
     Dosage: THERAPY START DATE: 5 YEARS AGO;
     Route: 058
  2. ETANERCEPT [Suspect]
     Active Substance: ETANERCEPT
     Indication: Ankylosing spondylitis
  3. ETANERCEPT [Suspect]
     Active Substance: ETANERCEPT

REACTIONS (10)
  - Pulmonary embolism [Unknown]
  - Phlebitis [Unknown]
  - Pain in extremity [Unknown]
  - Accidental exposure to product [Unknown]
  - Exposure via skin contact [Unknown]
  - Gait disturbance [Unknown]
  - Rheumatic disorder [Unknown]
  - Blood test abnormal [Unknown]
  - Incorrect dose administered [Unknown]
  - Off label use [Unknown]
